FAERS Safety Report 21833794 (Version 1)
Quarter: 2023Q1

REPORT INFORMATION
  Report Type: Spontaneous
  Country: FR (occurrence: FR)
  Receive Date: 20230108
  Receipt Date: 20230108
  Transmission Date: 20230417
  Serious: Yes (Hospitalization)
  Sender: FDA-Public Use
  Company Number: FR-AFSSAPS-BR20222795

PATIENT
  Age: 81 Year
  Sex: Female

DRUGS (2)
  1. ESCITALOPRAM [Suspect]
     Active Substance: ESCITALOPRAM OXALATE
     Indication: Depression
     Dosage: 20 MILLIGRAM, ONCE A DAY
     Route: 048
  2. ASTEMIZOLE [Suspect]
     Active Substance: ASTEMIZOLE
     Indication: Insomnia
     Dosage: 1 DOSAGE FORM, ONCE A DAY(2.5 MG LE SOIR)
     Route: 048
     Dates: start: 202211

REACTIONS (1)
  - Fall [Recovered/Resolved]

NARRATIVE: CASE EVENT DATE: 20221213
